FAERS Safety Report 10042669 (Version 1)
Quarter: 2014Q1

REPORT INFORMATION
  Report Type: Spontaneous
  Country: US (occurrence: US)
  Receive Date: 20140327
  Receipt Date: 20140327
  Transmission Date: 20141002
  Serious: Yes (Hospitalization)
  Sender: FDA-Public Use
  Company Number: US-MYLANLABS-2013S1003348

PATIENT
  Age: 5 Decade
  Sex: Female
  Weight: 135.17 kg

DRUGS (1)
  1. MONTELUKAST SODIUM TABLETS [Suspect]
     Dates: start: 2013, end: 2013

REACTIONS (5)
  - Asthma [Not Recovered/Not Resolved]
  - Chest discomfort [Not Recovered/Not Resolved]
  - Headache [Not Recovered/Not Resolved]
  - Dizziness [Not Recovered/Not Resolved]
  - Nausea [Not Recovered/Not Resolved]
